FAERS Safety Report 11398704 (Version 1)
Quarter: 2015Q3

REPORT INFORMATION
  Report Type: Spontaneous
  Country: US (occurrence: None)
  Receive Date: 20150818
  Receipt Date: 20150818
  Transmission Date: 20151125
  Serious: No
  Sender: FDA-Public Use
  Company Number: None

PATIENT
  Age: 29 Year
  Sex: Female
  Weight: 114.31 kg

DRUGS (5)
  1. PHENAZOPYRIDINE 200MG [Suspect]
     Active Substance: PHENAZOPYRIDINE
     Indication: URINARY TRACT INFECTION
     Dosage: 1 TABLE  TWICE DAILY  TAKEN BY MOUTH
     Route: 048
     Dates: start: 20150811, end: 20150814
  2. NITROFURANTOIN MONO MCR [Concomitant]
  3. MULTIVITAMIN [Concomitant]
     Active Substance: VITAMINS
  4. PHENAZOPYRIDINE 200MG [Suspect]
     Active Substance: PHENAZOPYRIDINE
     Indication: PAIN
     Dosage: 1 TABLE  TWICE DAILY  TAKEN BY MOUTH
     Route: 048
     Dates: start: 20150811, end: 20150814
  5. VITAMIN D [Concomitant]
     Active Substance: CHOLECALCIFEROL

REACTIONS (4)
  - Posture abnormal [None]
  - Hyperhidrosis [None]
  - Back pain [None]
  - Anxiety [None]

NARRATIVE: CASE EVENT DATE: 20150811
